FAERS Safety Report 9300181 (Version 1)
Quarter: 2013Q2

REPORT INFORMATION
  Report Type: Report from Study
  Country: US (occurrence: US)
  Receive Date: 20130521
  Receipt Date: 20130521
  Transmission Date: 20140414
  Serious: No
  Sender: FDA-Public Use
  Company Number: PHEH2013US011051

PATIENT
  Sex: Male

DRUGS (5)
  1. TASIGNA [Suspect]
     Indication: CHRONIC MYELOID LEUKAEMIA
     Dosage: 300 MG, BID
     Route: 048
     Dates: start: 20130417
  2. RAMIPRIL [Concomitant]
  3. LIPITOR [Concomitant]
  4. METOPROLOL [Concomitant]
  5. LASIX [Concomitant]

REACTIONS (2)
  - Bone pain [Not Recovered/Not Resolved]
  - Abdominal pain upper [Not Recovered/Not Resolved]
